FAERS Safety Report 4340533-X (Version None)
Quarter: 2004Q2

REPORT INFORMATION
  Report Type: 
  Country: None (occurrence: None)
  Receive Date: 20040414
  Receipt Date: 20040405
  Transmission Date: 20050107
  Serious: Yes (Disabling, Other)
  Sender: FDA-Public Use
  Company Number: 2004-02-0884

PATIENT
  Age: 25 Year
  Sex: Female

DRUGS (1)
  1. AERIUS (DESLORATADINE) TABLETS ^LIKE CLARINEX^ [Suspect]
     Indication: HYPERSENSITIVITY
     Dosage: 5 MG QD ORAL
     Route: 048
     Dates: start: 20031101, end: 20031128

REACTIONS (4)
  - DIFFICULTY IN WALKING [None]
  - DRUG INTOLERANCE [None]
  - MUSCLE CONTRACTURE [None]
  - MYALGIA [None]
